FAERS Safety Report 19279925 (Version 2)
Quarter: 2021Q2

REPORT INFORMATION
  Report Type: Spontaneous
  Country: DE (occurrence: DE)
  Receive Date: 20210520
  Receipt Date: 20210527
  Transmission Date: 20210717
  Serious: Yes (Other)
  Sender: FDA-Public Use
  Company Number: DE-ASTRAZENECA-2021A434611

PATIENT
  Sex: Female

DRUGS (1)
  1. FORMOTEROL/BUDESONIDE [Suspect]
     Active Substance: BUDESONIDE\FORMOTEROL
     Indication: ASTHMA
     Dosage: UNKNOWN UNKNOWN
     Route: 065
     Dates: start: 20200706, end: 20210502

REACTIONS (6)
  - Chest discomfort [Unknown]
  - Asthma [Unknown]
  - Hypothyroidism [Unknown]
  - Cough [Unknown]
  - Asthma [Recovered/Resolved]
  - Dyspnoea [Unknown]

NARRATIVE: CASE EVENT DATE: 2020
